FAERS Safety Report 7149995-6 (Version None)
Quarter: 2010Q4

REPORT INFORMATION
  Report Type: 
  Country: None (occurrence: None)
  Receive Date: 20101210
  Receipt Date: 20101202
  Transmission Date: 20110411
  Serious: Yes (Hospitalization)
  Sender: FDA-Public Use
  Company Number: JP-SHIRE-SPV1-2010-02128

PATIENT
  Age: 58 Year
  Sex: Male

DRUGS (2)
  1. FOSRENOL [Suspect]
     Indication: HYPERPHOSPHATAEMIA
     Dosage: UNK UNK, UNKNOWN
     Route: 048
     Dates: start: 20100101, end: 20101105
  2. FOSRENOL [Suspect]
     Dosage: UNK, UNKNOWN
     Route: 048
     Dates: start: 20101118

REACTIONS (2)
  - COLITIS ISCHAEMIC [None]
  - DIVERTICULUM INTESTINAL HAEMORRHAGIC [None]
